FAERS Safety Report 9335538 (Version 3)
Quarter: 2015Q1

REPORT INFORMATION
  Report Type: Report from Study
  Country: JP (occurrence: JP)
  Receive Date: 20130605
  Receipt Date: 20150324
  Transmission Date: 20150721
  Serious: Yes (Other)
  Sender: FDA-Public Use
  Company Number: JP-GLAXOSMITHKLINE-B0872735A

PATIENT
  Age: 81 Year
  Sex: Female
  Weight: 49 kg

DRUGS (37)
  1. PREDONINE [Suspect]
     Active Substance: PREDNISOLONE\PREDNISOLONE ACETATE\PREDNISOLONE SODIUM SUCCINATE
     Route: 048
     Dates: start: 20120719, end: 20120721
  2. PREDONINE [Suspect]
     Active Substance: PREDNISOLONE\PREDNISOLONE ACETATE\PREDNISOLONE SODIUM SUCCINATE
     Route: 048
     Dates: start: 20120907, end: 20120919
  3. PREDONINE [Suspect]
     Active Substance: PREDNISOLONE\PREDNISOLONE ACETATE\PREDNISOLONE SODIUM SUCCINATE
     Dosage: 5 MG, QD
     Route: 048
     Dates: start: 20120928
  4. LYRICA [Suspect]
     Active Substance: PREGABALIN
     Dosage: 75 MG, BID
     Route: 048
     Dates: start: 20120824
  5. NEUROTROPIN [Suspect]
     Active Substance: NEUROTROPIN
     Dosage: 4 IU, BID
     Route: 048
     Dates: start: 20120824, end: 20120829
  6. LECICARBON [Concomitant]
     Active Substance: SODIUM BICARBONATE\SODIUM PHOSPHATE, MONOBASIC
     Route: 054
     Dates: start: 20120907, end: 20120907
  7. PANTOSIN [Suspect]
     Active Substance: PANTETHINE
     Dosage: 100 MG, TID
     Route: 048
     Dates: start: 20120905, end: 20121017
  8. PREDONINE [Suspect]
     Active Substance: PREDNISOLONE\PREDNISOLONE ACETATE\PREDNISOLONE SODIUM SUCCINATE
     Route: 048
     Dates: start: 20120713, end: 20120715
  9. TRAMCET [Suspect]
     Active Substance: ACETAMINOPHEN\TRAMADOL
     Dosage: 1 DF, BID
     Route: 048
     Dates: start: 20120824, end: 20120910
  10. PROCYLIN [Suspect]
     Active Substance: BERAPROST SODIUM
     Dosage: 20 ?G, TID
     Route: 048
     Dates: start: 20120824
  11. MAGMITT [Suspect]
     Active Substance: MAGNESIUM OXIDE
     Dosage: 500 MG, TID
     Route: 048
     Dates: start: 20120824, end: 20120829
  12. PANTOSIN [Suspect]
     Active Substance: PANTETHINE
     Dosage: 0.5 G, TID
     Route: 048
     Dates: start: 20120824, end: 20120904
  13. PREDONINE [Suspect]
     Active Substance: PREDNISOLONE\PREDNISOLONE ACETATE\PREDNISOLONE SODIUM SUCCINATE
     Dosage: 10 MG, BID
     Route: 048
     Dates: start: 20120729
  14. PREDNISOLONE. [Suspect]
     Active Substance: PREDNISOLONE
     Dosage: 3 MG, QD
     Route: 048
     Dates: start: 20120928, end: 20121019
  15. JUVELA [Suspect]
     Active Substance: .ALPHA.-TOCOPHEROL\RETINOL
     Dosage: 200 MG, BID
     Route: 048
     Dates: start: 20120824, end: 20120829
  16. BIO-THREE [Suspect]
     Active Substance: HERBALS
     Dosage: 1 G, BID
     Route: 048
     Dates: start: 20120824, end: 20120829
  17. BIO-THREE [Concomitant]
     Active Substance: HERBALS
     Route: 048
     Dates: start: 20121001, end: 20121008
  18. PREDONINE [Suspect]
     Active Substance: PREDNISOLONE\PREDNISOLONE ACETATE\PREDNISOLONE SODIUM SUCCINATE
     Dosage: 1 MG, QD
     Route: 048
     Dates: start: 20121027
  19. ATOVAQUONE. [Suspect]
     Active Substance: ATOVAQUONE
     Indication: ANTIFUNGAL PROPHYLAXIS
     Dosage: 1500 MG, QD
     Route: 048
     Dates: start: 20120824, end: 20121031
  20. PREDONINE [Suspect]
     Active Substance: PREDNISOLONE\PREDNISOLONE ACETATE\PREDNISOLONE SODIUM SUCCINATE
     Dosage: 20 MG, BID
     Route: 048
     Dates: start: 20120724
  21. PREDONINE [Suspect]
     Active Substance: PREDNISOLONE\PREDNISOLONE ACETATE\PREDNISOLONE SODIUM SUCCINATE
     Dosage: 2 MG, QD
     Route: 048
     Dates: start: 20121020, end: 20121026
  22. PREDNISOLONE. [Suspect]
     Active Substance: PREDNISOLONE
     Route: 048
     Dates: start: 20121027
  23. CELECOXIB. [Suspect]
     Active Substance: CELECOXIB
     Dosage: 100 MG, BID
     Route: 048
     Dates: start: 20120824, end: 20120919
  24. ACTONEL [Concomitant]
     Active Substance: RISEDRONATE SODIUM
     Route: 048
     Dates: start: 20120905, end: 20121107
  25. MAGLAX [Suspect]
     Active Substance: MAGNESIUM OXIDE
     Dosage: 660 MG, TID
     Route: 048
     Dates: start: 20120905, end: 20121017
  26. SULFAMETHOXAZOLE AND TRIMETHOPRIM [Suspect]
     Active Substance: SULFAMETHOXAZOLE\TRIMETHOPRIM
     Indication: PNEUMOCYSTIS JIROVECII PNEUMONIA
     Dosage: 4.5 DF, BID
     Route: 048
     Dates: start: 20120724, end: 20120813
  27. PREDONINE [Suspect]
     Active Substance: PREDNISOLONE\PREDNISOLONE ACETATE\PREDNISOLONE SODIUM SUCCINATE
     Route: 048
     Dates: end: 20120906
  28. METHYCOBAL [Suspect]
     Active Substance: METHYLCOBALAMIN
     Dosage: 500 ?G, TID
     Route: 048
     Dates: start: 20120824, end: 20120829
  29. MAGLAX [Suspect]
     Active Substance: MAGNESIUM OXIDE
     Dosage: 0.6 G, TID
     Route: 048
     Dates: start: 20120830, end: 20120904
  30. PARIET [Suspect]
     Active Substance: RABEPRAZOLE SODIUM
     Route: 048
     Dates: start: 20120824
  31. GASMOTIN [Suspect]
     Active Substance: MOSAPRIDE CITRATE
     Dosage: 5 MG, TID
     Route: 048
     Dates: start: 20120919, end: 20120924
  32. PREDONINE [Suspect]
     Active Substance: PREDNISOLONE\PREDNISOLONE ACETATE\PREDNISOLONE SODIUM SUCCINATE
     Dosage: 10 MG, QD
     Route: 048
     Dates: start: 20120920, end: 20120927
  33. OPALMON [Suspect]
     Active Substance: LIMAPROST
     Dosage: 5 ?G, TID
     Route: 048
     Dates: start: 20120824
  34. PREDONINE [Suspect]
     Active Substance: PREDNISOLONE\PREDNISOLONE ACETATE\PREDNISOLONE SODIUM SUCCINATE
     Dosage: 3 MG, QD
     Route: 048
     Dates: start: 20120928, end: 20121019
  35. PREDNISOLONE. [Suspect]
     Active Substance: PREDNISOLONE
     Route: 048
     Dates: start: 20121020, end: 20121026
  36. PRIMPERAN [Concomitant]
     Active Substance: METOCLOPRAMIDE HYDROCHLORIDE
     Route: 042
     Dates: start: 20120909, end: 20120909
  37. SENNOSIDE [Concomitant]
     Active Substance: SENNOSIDES
     Route: 048
     Dates: start: 20120824, end: 20121016

REACTIONS (6)
  - Enteritis infectious [Recovering/Resolving]
  - Diarrhoea [Recovered/Resolved]
  - Paronychia [Recovered/Resolved]
  - Vomiting [Recovering/Resolving]
  - Skin ulcer [Recovering/Resolving]
  - Pyrexia [Recovered/Resolved]

NARRATIVE: CASE EVENT DATE: 20120824
